FAERS Safety Report 7990972-0 (Version None)
Quarter: 2011Q4

REPORT INFORMATION
  Report Type: 
  Country: None (occurrence: None)
  Receive Date: 20111219
  Receipt Date: 20080311
  Transmission Date: 20120403
  Serious: Yes (Hospitalization)
  Sender: FDA-Public Use
  Company Number: US-BAYER-200811009BCC

PATIENT
  Age: 39 Year
  Sex: Female
  Weight: 54.422 kg

DRUGS (1)
  1. ALEVE (CAPLET) [Suspect]
     Route: 048
     Dates: start: 20010101, end: 20050101

REACTIONS (5)
  - COLITIS [None]
  - HAEMATOCHEZIA [None]
  - LOWER EXTREMITY MASS [None]
  - ROAD TRAFFIC ACCIDENT [None]
  - NAUSEA [None]
